FAERS Safety Report 5422111-4 (Version None)
Quarter: 2007Q3

REPORT INFORMATION
  Report Type: 
  Country: None (occurrence: None)
  Receive Date: 20070821
  Receipt Date: 20070821
  Transmission Date: 20080115
  Serious: Yes (Hospitalization)
  Sender: FDA-Public Use
  Company Number: None

PATIENT
  Age: 82 Year
  Sex: Male
  Weight: 56.6996 kg

DRUGS (1)
  1. BUPROPION SSR [Suspect]
     Indication: DEPRESSION
     Dosage: 150MG QD PO
     Route: 048

REACTIONS (6)
  - DEHYDRATION [None]
  - EJECTION FRACTION DECREASED [None]
  - NAUSEA [None]
  - ORAL INTAKE REDUCED [None]
  - URINARY TRACT INFECTION [None]
  - VOMITING [None]
